FAERS Safety Report 15790061 (Version 6)
Quarter: 2021Q4

REPORT INFORMATION
  Report Type: Spontaneous
  Country: ES (occurrence: ES)
  Receive Date: 20190104
  Receipt Date: 20211130
  Transmission Date: 20220303
  Serious: Yes (Hospitalization, Other)
  Sender: FDA-Public Use
  Company Number: ES-JNJFOC-20180512401

PATIENT
  Age: 50 Year
  Sex: Female

DRUGS (7)
  1. CLOPIDOGREL [Interacting]
     Active Substance: CLOPIDOGREL BISULFATE
     Indication: Antiplatelet therapy
     Dosage: 2 MILLIGRAM/KILOGRAM, QD (1 MG/KG, BID)
     Route: 065
  2. CLOPIDOGREL [Interacting]
     Active Substance: CLOPIDOGREL BISULFATE
     Dosage: DOSAGE FORM: UNSPECIFIED
     Route: 065
  3. ASPIRIN [Interacting]
     Active Substance: ASPIRIN
     Indication: Antiplatelet therapy
     Dosage: 2 MILLIGRAM/KILOGRAM, QD (1 MG/KG, BID)
     Route: 065
  4. ASPIRIN [Interacting]
     Active Substance: ASPIRIN
     Dosage: DOSAGE FORM: UNSPECIFIED
     Route: 065
  5. ENOXAPARIN SODIUM [Interacting]
     Active Substance: ENOXAPARIN SODIUM
     Indication: Anticoagulant therapy
     Dosage: 1 MG/KG, 12 HOUR (DOSAGE FORM: UNSPECIFIED)
     Route: 058
  6. ENOXAPARIN SODIUM [Interacting]
     Active Substance: ENOXAPARIN SODIUM
     Dosage: 2 MILLIGRAM/KILOGRAM, QD (1 MG/KG, BID)
     Route: 058
  7. ABCIXIMAB [Suspect]
     Active Substance: ABCIXIMAB
     Indication: Catheter placement
     Dosage: UNK
     Route: 040

REACTIONS (8)
  - Melaena [Unknown]
  - Ecchymosis [Recovered/Resolved]
  - Thrombocytopenia [Recovered/Resolved]
  - Hypotension [Unknown]
  - Anaemia [Recovering/Resolving]
  - Petechiae [Recovered/Resolved]
  - Immune thrombocytopenia [Recovered/Resolved]
  - Labelled drug-drug interaction medication error [Unknown]
